FAERS Safety Report 10486592 (Version 1)
Quarter: 2014Q3

REPORT INFORMATION
  Report Type: Spontaneous
  Country: US (occurrence: None)
  Receive Date: 20140930
  Receipt Date: 20140930
  Transmission Date: 20150326
  Serious: No
  Sender: FDA-Public Use
  Company Number: None

PATIENT
  Age: 16 Year
  Sex: Male
  Weight: 72.58 kg

DRUGS (1)
  1. METHYLPHENIDATE [Suspect]
     Active Substance: METHYLPHENIDATE
     Indication: ATTENTION DEFICIT/HYPERACTIVITY DISORDER
     Dosage: 3 PILLS ONCE DAILY TAKEN BY MOUTH
     Route: 048
     Dates: start: 20140401, end: 20140928

REACTIONS (8)
  - Attention deficit/hyperactivity disorder [None]
  - Educational problem [None]
  - Impaired driving ability [None]
  - Abnormal behaviour [None]
  - Self injurious behaviour [None]
  - Drug ineffective [None]
  - Impulsive behaviour [None]
  - Product substitution issue [None]

NARRATIVE: CASE EVENT DATE: 20130301
